FAERS Safety Report 14599183 (Version 1)
Quarter: 2018Q1

REPORT INFORMATION
  Report Type: Spontaneous
  Country: US (occurrence: US)
  Receive Date: 20180303
  Receipt Date: 20180303
  Transmission Date: 20180509
  Serious: Yes (Hospitalization)
  Sender: FDA-Public Use
  Company Number: None

PATIENT
  Age: 23 Year
  Sex: Female

DRUGS (9)
  1. CELEXA [Concomitant]
     Active Substance: CITALOPRAM HYDROBROMIDE
  2. COZAAR [Concomitant]
     Active Substance: LOSARTAN POTASSIUM
  3. AFINITOR [Suspect]
     Active Substance: EVEROLIMUS
     Indication: CONGENITAL CYSTIC KIDNEY DISEASE
     Dosage: 1 EVERYDAY
     Route: 048
     Dates: start: 20170121
  4. ZANTAC [Concomitant]
     Active Substance: RANITIDINE HYDROCHLORIDE
  5. SODIUM POW BICARBON [Concomitant]
  6. RANITIDINE. [Concomitant]
     Active Substance: RANITIDINE
  7. VITAMIN D [Concomitant]
     Active Substance: CHOLECALCIFEROL
  8. ONFI [Concomitant]
     Active Substance: CLOBAZAM
  9. VIMPAT [Concomitant]
     Active Substance: LACOSAMIDE

REACTIONS (4)
  - Lymphangioleiomyomatosis [None]
  - Platelet count decreased [None]
  - White blood cell count decreased [None]
  - Pyrexia [None]
